FAERS Safety Report 4463283-8 (Version None)
Quarter: 2004Q3

REPORT INFORMATION
  Report Type: 
  Country: None (occurrence: None)
  Receive Date: 20040930
  Receipt Date: 20040609
  Transmission Date: 20050211
  Serious: No
  Sender: FDA-Public Use
  Company Number: US-BRISTOL-MYERS SQUIBB COMPANY-12610747

PATIENT
  Age: 56 Year
  Sex: Male

DRUGS (19)
  1. STAVUDINE [Suspect]
     Indication: HIV INFECTION
  2. DIDANOSINE [Suspect]
     Indication: HIV INFECTION
  3. DIDANOSINE [Suspect]
     Indication: HIV INFECTION
  4. ATAZANAVIR [Suspect]
     Indication: HIV INFECTION
     Dosage: INITIATED AT 400 MG DAILY FOR TWO WEEKS
  5. LOPINAVIR + RITONAVIR [Suspect]
     Indication: HIV INFECTION
  6. LAMIVUDINE + ZIDOVUDINE [Suspect]
     Indication: HIV INFECTION
  7. TENOFOVIR DF [Suspect]
     Indication: HIV INFECTION
  8. SAQUINAVIR [Suspect]
     Indication: HIV INFECTION
  9. ENFUVIRTIDE [Suspect]
     Indication: HIV INFECTION
  10. RITONAVIR [Suspect]
     Indication: HIV INFECTION
  11. SULFAMETHOXAZOLE + TRIMETHOPRIM DS [Concomitant]
  12. TRAZODONE HCL [Concomitant]
  13. AZITHROMYCIN [Concomitant]
  14. TERBINAFINE HCL [Concomitant]
  15. TESTOSTERONE [Concomitant]
     Dosage: GEL
  16. LORAZEPAM [Concomitant]
  17. NORTRIPTYLINE HCL [Concomitant]
  18. ZOLPIDEM TARTRATE [Concomitant]
  19. LEVOCARNITINE [Concomitant]

REACTIONS (4)
  - BLOOD TESTOSTERONE DECREASED [None]
  - JAUNDICE [None]
  - NEUROPATHY PERIPHERAL [None]
  - PNEUMONIA [None]
